FAERS Safety Report 4875837-5 (Version None)
Quarter: 2006Q1

REPORT INFORMATION
  Report Type: 
  Country: None (occurrence: None)
  Receive Date: 20060109
  Receipt Date: 20030605
  Transmission Date: 20060701
  Serious: Yes (Hospitalization, Disabling)
  Sender: FDA-Public Use
  Company Number: US-MERCK-0306USA00636

PATIENT
  Age: 35 Year
  Sex: Female
  Weight: 111 kg

DRUGS (7)
  1. TOPROL-XL [Concomitant]
     Route: 065
  2. TYLENOL W/ CODEINE NO. 3 [Concomitant]
     Route: 065
  3. VIOXX [Suspect]
     Indication: ARTHRALGIA
     Route: 048
     Dates: start: 20010716, end: 20011001
  4. CELEBREX [Concomitant]
     Route: 065
  5. TYLENOL [Concomitant]
     Route: 065
  6. ASPIRIN [Concomitant]
     Route: 065
  7. NEXIUM [Concomitant]
     Route: 065

REACTIONS (21)
  - ADVERSE EVENT [None]
  - ANGINA UNSTABLE [None]
  - BREAST DISORDER [None]
  - BRONCHITIS [None]
  - CHEST PAIN [None]
  - CHOLELITHIASIS [None]
  - DERMAL CYST [None]
  - DUODENITIS [None]
  - ECZEMA [None]
  - ELECTROCARDIOGRAM ABNORMAL [None]
  - EPISTAXIS [None]
  - GALLBLADDER DISORDER [None]
  - GASTRITIS [None]
  - HAEMORRHAGE [None]
  - HELICOBACTER GASTRITIS [None]
  - HYPERTENSION [None]
  - JOINT SPRAIN [None]
  - OTITIS MEDIA [None]
  - PLEURISY [None]
  - SINUSITIS [None]
  - SKIN DISORDER [None]
